FAERS Safety Report 18519279 (Version 2)
Quarter: 2020Q4

REPORT INFORMATION
  Report Type: Spontaneous
  Country: FR (occurrence: FR)
  Receive Date: 20201118
  Receipt Date: 20201209
  Transmission Date: 20210114
  Serious: Yes (Death, Hospitalization, Other)
  Sender: FDA-Public Use
  Company Number: FR-TAKEDA-2020TUS049150

PATIENT
  Age: 71 Year
  Sex: Female

DRUGS (2)
  1. XAGRID [Suspect]
     Active Substance: ANAGRELIDE HYDROCHLORIDE
     Indication: ESSENTIAL THROMBOCYTHAEMIA
     Dosage: 3 MILLIGRAM, QD
     Route: 048
  2. XAGRID [Suspect]
     Active Substance: ANAGRELIDE HYDROCHLORIDE
     Dosage: UNK
     Route: 065
     Dates: end: 20201011

REACTIONS (6)
  - Death [Fatal]
  - Thrombocytosis [Unknown]
  - Epilepsy [Unknown]
  - Cerebrovascular accident [Unknown]
  - Vasculitis [Unknown]
  - Neurological decompensation [Unknown]

NARRATIVE: CASE EVENT DATE: 20201111
